FAERS Safety Report 5030125-1 (Version None)
Quarter: 2006Q2

REPORT INFORMATION
  Report Type: 
  Country: None (occurrence: None)
  Receive Date: 20060614
  Receipt Date: 20060526
  Transmission Date: 20061013
  Serious: No
  Sender: FDA-Public Use
  Company Number: JP200605006051

PATIENT
  Age: 28 Year
  Sex: Male

DRUGS (3)
  1. OLANZAPINE [Suspect]
     Dosage: 20 MG, DAILY (1/D), ORAL
     Route: 048
  2. QUETIAPINE FUMARATE [Concomitant]
  3. CHLORPROMAZINE [Concomitant]

REACTIONS (1)
  - PLATELET COUNT INCREASED [None]
